FAERS Safety Report 4344869-8 (Version None)
Quarter: 2004Q2

REPORT INFORMATION
  Report Type: 
  Country: None (occurrence: None)
  Receive Date: 20040423
  Receipt Date: 20031020
  Transmission Date: 20050107
  Serious: No
  Sender: FDA-Public Use
  Company Number: US-GLAXOSMITHKLINE-A0431213A

PATIENT
  Age: 25 Year
  Sex: Female

DRUGS (3)
  1. ZOFRAN [Suspect]
     Indication: VOMITING
     Dosage: 8MG FOUR TIMES PER DAY
     Route: 065
     Dates: start: 20031004
  2. PEPCID AC [Suspect]
     Indication: NAUSEA
     Dosage: 10MG SIX TIMES PER DAY
     Route: 048
  3. PEPCID [Suspect]
     Indication: NAUSEA
     Route: 042
     Dates: start: 20030927, end: 20031004

REACTIONS (2)
  - CONSTIPATION [None]
  - DRUG EXPOSURE DURING PREGNANCY [None]
